FAERS Safety Report 17020322 (Version 1)
Quarter: 2019Q4

REPORT INFORMATION
  Report Type: Spontaneous
  Country: US (occurrence: US)
  Receive Date: 20191112
  Receipt Date: 20191112
  Transmission Date: 20200122
  Serious: Yes (Life-Threatening, Hospitalization)
  Sender: FDA-Public Use
  Company Number: US-AMERICAN REGENT INC-20180645

PATIENT
  Age: 33 Year
  Sex: Female

DRUGS (1)
  1. INJECTAFER [Suspect]
     Active Substance: FERRIC CARBOXYMALTOSE
     Indication: PRODUCT USED FOR UNKNOWN INDICATION
     Dosage: UNK (TWO DOSES)
     Dates: start: 2018

REACTIONS (3)
  - Palpitations [Recovering/Resolving]
  - Hypophosphataemia [Recovering/Resolving]
  - Hyperphosphaturia [Recovering/Resolving]

NARRATIVE: CASE EVENT DATE: 2018
